FAERS Safety Report 15144491 (Version 3)
Quarter: 2019Q2

REPORT INFORMATION
  Report Type: Spontaneous
  Country: DE (occurrence: DE)
  Receive Date: 20180713
  Receipt Date: 20190626
  Transmission Date: 20190711
  Serious: Yes (Death, Hospitalization)
  Sender: FDA-Public Use
  Company Number: PHHY2018DE027680

PATIENT
  Age: 56 Year
  Sex: Male
  Weight: 83 kg

DRUGS (16)
  1. CARBOPLATIN. [Suspect]
     Active Substance: CARBOPLATIN
     Indication: NON-SMALL CELL LUNG CANCER
     Dosage: 6 MG/ML, UNK
     Route: 041
  2. ZOFRAN [Concomitant]
     Active Substance: ONDANSETRON HYDROCHLORIDE
     Indication: PROPHYLAXIS
     Dosage: 8 MG, UNK
     Route: 041
  3. XIPAMID [Concomitant]
     Active Substance: XIPAMIDE
     Indication: CARDIAC FAILURE
     Dosage: 10 MG, QD
     Route: 048
     Dates: start: 20180327
  4. DEXAMETHASONE. [Concomitant]
     Active Substance: DEXAMETHASONE
     Indication: PROPHYLAXIS
     Dosage: 24 MG, QD
     Route: 048
     Dates: start: 20180312
  5. TRYASOL [Concomitant]
     Indication: COUGH
     Dosage: 15 GTT, UNK
     Route: 048
  6. ZOPICLON [Concomitant]
     Active Substance: ZOPICLONE
     Indication: INSOMNIA
     Dosage: 7.5 MG, UNK
     Route: 048
  7. COTRIM E RATIOPHARM [Concomitant]
     Indication: PROPHYLAXIS
     Dosage: 1920 MG, QD
     Route: 048
     Dates: start: 20180319, end: 20180323
  8. DEXAMETHASONE. [Concomitant]
     Active Substance: DEXAMETHASONE
     Dosage: 8 MG, UNK
     Route: 041
  9. TORASEMID [Concomitant]
     Active Substance: TORSEMIDE
     Indication: CARDIAC FAILURE
     Dosage: 20 MG, QD
     Route: 048
     Dates: start: 20180328
  10. AMPHO-MORONAL [Concomitant]
     Active Substance: AMPHOTERICIN B
     Indication: PROPHYLAXIS
     Dosage: 4 ML, QD
     Route: 048
     Dates: start: 20180319, end: 20180329
  11. ABRAXANE [Suspect]
     Active Substance: PACLITAXEL
     Indication: NON-SMALL CELL LUNG CANCER
     Dosage: 100 MG/M2, QD
     Route: 041
     Dates: start: 20180310
  12. TORASEMID [Concomitant]
     Active Substance: TORSEMIDE
     Dosage: 10 MG, QD
     Route: 048
     Dates: start: 20180329
  13. FUROSEMIDE. [Concomitant]
     Active Substance: FUROSEMIDE
     Dosage: 60 MG, QD
     Route: 041
     Dates: start: 20180319, end: 20180326
  14. NOVAMINSULFON [Concomitant]
     Active Substance: METAMIZOLE
     Indication: TUMOUR PAIN
     Dosage: 500 MG, UNK
     Route: 048
  15. FUROSEMIDE. [Concomitant]
     Active Substance: FUROSEMIDE
     Indication: CARDIAC FAILURE
     Dosage: 40 MG, QD
     Route: 041
     Dates: start: 20180319
  16. SALINE [Concomitant]
     Active Substance: SODIUM CHLORIDE
     Indication: PROPHYLAXIS
     Dosage: 500 ML, UNK
     Route: 041

REACTIONS (3)
  - Thrombocytopenia [Not Recovered/Not Resolved]
  - Death [Fatal]
  - Leukopenia [Recovered/Resolved]

NARRATIVE: CASE EVENT DATE: 20180319
